FAERS Safety Report 9895315 (Version 1)
Quarter: 2014Q1

REPORT INFORMATION
  Report Type: Spontaneous
  Country: US (occurrence: US)
  Receive Date: 20140213
  Receipt Date: 20140213
  Transmission Date: 20141002
  Serious: No
  Sender: FDA-Public Use
  Company Number: US-BRISTOL-MYERS SQUIBB COMPANY-18935254

PATIENT
  Age: 56 Year
  Sex: Female
  Weight: 71.65 kg

DRUGS (18)
  1. ABATACEPT SUBQ INJECTION 125MG/ML [Suspect]
     Indication: RHEUMATOID ARTHRITIS
     Dosage: 1DF:125MG/ML
     Route: 058
  2. VITAMIN D [Concomitant]
     Dosage: 1DF:500 UNITS ?CAPS
  3. CALTRATE [Concomitant]
     Dosage: 1DF:600 UNITS NOS?TABS
  4. CALCIFEROL [Concomitant]
  5. MULTIVITAMIN [Concomitant]
     Dosage: TAB
  6. ESTER-C [Concomitant]
     Dosage: TAB
  7. PRAVASTATINE TABS 10 MG [Concomitant]
  8. PANTOPRAZOLE [Concomitant]
     Dosage: TABS
  9. OXYCODONE [Concomitant]
     Dosage: CAPS
  10. ACYCLOVIR [Concomitant]
     Dosage: CAPS
  11. ADVAIR DISKUS [Concomitant]
     Dosage: 1DF:100/50
  12. NIASPAN [Concomitant]
     Dosage: TABS
  13. SEROQUEL [Concomitant]
     Dosage: TABS
  14. FOLIC ACID [Concomitant]
     Dosage: TABS
  15. LAMOTRIGINE [Concomitant]
     Dosage: TABS
  16. METHOTREXATE [Concomitant]
  17. ALPRAZOLAM [Concomitant]
  18. OXYCONTIN [Concomitant]
     Dosage: TABS

REACTIONS (1)
  - Drug ineffective [Unknown]
